FAERS Safety Report 19307451 (Version 1)
Quarter: 2021Q2

REPORT INFORMATION
  Report Type: Other
  Country: CZ (occurrence: CZ)
  Receive Date: 20210526
  Receipt Date: 20210526
  Transmission Date: 20210717
  Serious: Yes (Hospitalization, Other)
  Sender: FDA-Public Use
  Company Number: CZ-STRIDES ARCOLAB LIMITED-2021SP005778

PATIENT
  Sex: Male

DRUGS (7)
  1. PERINDOPRIL [Suspect]
     Active Substance: PERINDOPRIL
     Indication: HYPERTENSION
     Dosage: UNK
     Route: 065
  2. URAPIDIL [Suspect]
     Active Substance: URAPIDIL
     Indication: HYPERTENSION
     Dosage: UNK
     Route: 065
  3. VERAPAMIL [Suspect]
     Active Substance: VERAPAMIL HYDROCHLORIDE
     Indication: HYPERTENSION
     Dosage: UNK
     Route: 065
  4. AMLODIPINE [Suspect]
     Active Substance: AMLODIPINE BESYLATE
     Indication: HYPERTENSION
     Dosage: UNK
     Route: 065
  5. IBUPROFEN. [Suspect]
     Active Substance: IBUPROFEN
     Indication: SPINAL PAIN
     Dosage: UNK
     Route: 065
     Dates: start: 201402
  6. TELMISARTAN. [Suspect]
     Active Substance: TELMISARTAN
     Indication: HYPERTENSION
     Dosage: UNK
     Route: 065
  7. DOXAZOSIN [Suspect]
     Active Substance: DOXAZOSIN MESYLATE
     Indication: HYPERTENSION
     Dosage: UNK
     Route: 065

REACTIONS (8)
  - Obesity [Unknown]
  - Erythema [Unknown]
  - Drug resistance [Unknown]
  - Hypertension [Unknown]
  - Hypertensive angiopathy [Unknown]
  - Left ventricular hypertrophy [Unknown]
  - Microalbuminuria [Unknown]
  - Gastrointestinal disorder [Unknown]
